FAERS Safety Report 19756006 (Version 2)
Quarter: 2021Q3

REPORT INFORMATION
  Report Type: Spontaneous
  Country: JP (occurrence: JP)
  Receive Date: 20210827
  Receipt Date: 20210920
  Transmission Date: 20211014
  Serious: Yes (Other)
  Sender: FDA-Public Use
  Company Number: JP-PFIZER INC-2021618009

PATIENT
  Age: 51 Year
  Sex: Male
  Weight: 89.7 kg

DRUGS (14)
  1. DALACIN 150MG [Suspect]
     Active Substance: CLINDAMYCIN HYDROCHLORIDE
     Indication: MUSCLE ABSCESS
  2. REBAMIPIDE [Suspect]
     Active Substance: REBAMIPIDE
     Indication: GASTROINTESTINAL DISORDER PROPHYLAXIS
     Dosage: 100 MG, 1 TABLET THREE TIMES A DAY
     Route: 048
     Dates: start: 20210416, end: 20210420
  3. ALLOPURINOL. [Concomitant]
     Active Substance: ALLOPURINOL
     Indication: GOUT
     Dosage: 100 MG, 2X/DAY
     Route: 048
     Dates: start: 20210222
  4. AZELNIDIPINE [Concomitant]
     Active Substance: AZELNIDIPINE
     Indication: HYPERTENSION
     Dosage: 16 MG, 1X/DAY
     Route: 048
     Dates: start: 20210222
  5. ONETRAM [Concomitant]
     Active Substance: TRAMADOL HYDROCHLORIDE
     Indication: PAIN
     Dosage: 100 MG, 1X/DAY
     Route: 048
     Dates: start: 20210412
  6. DALACIN 150MG [Suspect]
     Active Substance: CLINDAMYCIN HYDROCHLORIDE
     Indication: EXTRADURAL ABSCESS
  7. MAGMITT [Concomitant]
     Active Substance: MAGNESIUM OXIDE
     Dosage: 500 MG, 1X/DAY
     Route: 048
     Dates: start: 20210412
  8. BENZBROMARONE [Concomitant]
     Active Substance: BENZBROMARONE
     Indication: GOUT
     Dosage: 50 MG, 1X/DAY
     Route: 048
     Dates: start: 20210222
  9. CEFAZOLIN SODIUM. [Concomitant]
     Active Substance: CEFAZOLIN SODIUM
     Indication: MUSCLE ABSCESS
  10. CEFAZOLIN SODIUM. [Concomitant]
     Active Substance: CEFAZOLIN SODIUM
     Indication: EXTRADURAL ABSCESS
  11. DALACIN 150MG [Suspect]
     Active Substance: CLINDAMYCIN HYDROCHLORIDE
     Indication: SPONDYLITIS
     Dosage: 300 MG (2 CAPSULES OF 150 MG), THREE TIMES A DAY
     Route: 048
     Dates: start: 20210415, end: 20210420
  12. DICLOFENAC NA [Suspect]
     Active Substance: DICLOFENAC SODIUM
     Indication: PAIN
     Dosage: 25 MG, 1 TABLET THREE TIMES A DAY
     Route: 048
     Dates: start: 20210416, end: 20210420
  13. CEFAZOLIN SODIUM. [Concomitant]
     Active Substance: CEFAZOLIN SODIUM
     Indication: SPONDYLITIS
     Dosage: UNK
     Dates: start: 20210415, end: 20210506
  14. VALSARTAN ME [Concomitant]
     Dosage: 80 MG, 1X/DAY
     Route: 048
     Dates: start: 20210222

REACTIONS (3)
  - Eosinophil percentage increased [Recovered/Resolved]
  - Eosinophil count increased [Recovered/Resolved]
  - Drug eruption [Recovering/Resolving]

NARRATIVE: CASE EVENT DATE: 20210420
